FAERS Safety Report 20458403 (Version 1)
Quarter: 2022Q1

REPORT INFORMATION
  Report Type: Spontaneous
  Country: DK (occurrence: DK)
  Receive Date: 20220211
  Receipt Date: 20220211
  Transmission Date: 20220423
  Serious: Yes (Hospitalization, Other)
  Sender: FDA-Public Use
  Company Number: DK-ALKEM LABORATORIES LIMITED-DK-ALKEM-2022-00827

PATIENT
  Age: 54 Year
  Weight: 66 kg

DRUGS (1)
  1. METFORMIN HYDROCHLORIDE [Suspect]
     Active Substance: METFORMIN HYDROCHLORIDE
     Indication: Product used for unknown indication
     Dosage: 80 GRAM
     Route: 065

REACTIONS (12)
  - Suicide attempt [Unknown]
  - Overdose [Unknown]
  - Hypothermia [Unknown]
  - Acute kidney injury [Unknown]
  - Polyneuropathy [Unknown]
  - Toxicity to various agents [Unknown]
  - Lactic acidosis [Unknown]
  - Hypotension [Unknown]
  - Oliguria [Unknown]
  - Hypoglycaemia [Unknown]
  - Dysphagia [Unknown]
  - Arrhythmia [Unknown]
